FAERS Safety Report 24927749 (Version 1)
Quarter: 2025Q1

REPORT INFORMATION
  Report Type: Spontaneous
  Country: US (occurrence: None)
  Receive Date: 20250204
  Receipt Date: 20250204
  Transmission Date: 20250409
  Serious: Yes (Death)
  Sender: FDA-CTU
  Company Number: None

PATIENT
  Age: 96 Year
  Sex: Female

DRUGS (7)
  1. PROLIA [Suspect]
     Active Substance: DENOSUMAB
     Indication: Osteoporosis
     Route: 058
     Dates: start: 20240813
  2. CALCIUM [Concomitant]
     Active Substance: CALCIUM
  3. MINERALS\VITAMINS [Concomitant]
     Active Substance: MINERALS\VITAMINS
  4. LOSARTAN [Concomitant]
     Active Substance: LOSARTAN
  5. SIMVASTATIN [Concomitant]
     Active Substance: SIMVASTATIN
  6. TAFLUPROST [Concomitant]
     Active Substance: TAFLUPROST
  7. VITAMIN D [Concomitant]
     Active Substance: VITAMIN D NOS

REACTIONS (1)
  - Death [None]
